FAERS Safety Report 23198342 (Version 2)
Quarter: 2023Q4

REPORT INFORMATION
  Report Type: Spontaneous
  Country: JP (occurrence: JP)
  Receive Date: 20231117
  Receipt Date: 20231130
  Transmission Date: 20240110
  Serious: Yes (Other)
  Sender: FDA-Public Use
  Company Number: JP-BAUSCH-BL-2023-017129

PATIENT
  Age: 5 Decade
  Sex: Female

DRUGS (1)
  1. BUDESONIDE [Suspect]
     Active Substance: BUDESONIDE
     Indication: Product used for unknown indication
     Route: 048

REACTIONS (4)
  - Haematochezia [Unknown]
  - Pyrexia [Unknown]
  - Diarrhoea [Unknown]
  - Therapy cessation [Unknown]
